FAERS Safety Report 7451900-X (Version None)
Quarter: 2011Q2

REPORT INFORMATION
  Report Type: 
  Country: None (occurrence: None)
  Receive Date: 20110502
  Receipt Date: 20110427
  Transmission Date: 20111010
  Serious: Yes (Life-Threatening, Hospitalization)
  Sender: FDA-Public Use
  Company Number: US-MERCK-1104USA03875

PATIENT

DRUGS (1)
  1. IVEMEND [Suspect]
     Indication: GASTRIC CANCER
     Route: 041
     Dates: start: 20110418

REACTIONS (1)
  - RESPIRATORY DISTRESS [None]
